FAERS Safety Report 10164513 (Version 1)
Quarter: 2014Q2

REPORT INFORMATION
  Report Type: Spontaneous
  Country: US (occurrence: US)
  Receive Date: 20140510
  Receipt Date: 20140510
  Transmission Date: 20141212
  Serious: No
  Sender: FDA-Public Use
  Company Number: US-BRISTOL-MYERS SQUIBB COMPANY-20082806

PATIENT
  Age: 53 Year
  Sex: Female
  Weight: 85.71 kg

DRUGS (2)
  1. BYDUREON [Suspect]
     Indication: DIABETES MELLITUS
     Dates: start: 20121025
  2. METFORMIN [Concomitant]

REACTIONS (1)
  - Injection site swelling [Unknown]
